FAERS Safety Report 13151923 (Version 2)
Quarter: 2017Q1

REPORT INFORMATION
  Report Type: Report from Study
  Country: ZA (occurrence: ZA)
  Receive Date: 20170125
  Receipt Date: 20170215
  Transmission Date: 20170428
  Serious: Yes (Death, Hospitalization, Other)
  Sender: FDA-Public Use
  Company Number: PHHY2017ZA011410

PATIENT
  Sex: Female
  Weight: 64.8 kg

DRUGS (6)
  1. SPRYCEL [Suspect]
     Active Substance: DASATINIB
     Indication: PRODUCT USED FOR UNKNOWN INDICATION
     Dosage: 100 MG, QD
     Route: 048
     Dates: start: 201305, end: 201307
  2. GLIVEC [Suspect]
     Active Substance: IMATINIB MESYLATE
     Indication: CHRONIC MYELOID LEUKAEMIA
     Dosage: 400 MG, QD
     Route: 048
     Dates: start: 201206, end: 201304
  3. VALCYTE [Suspect]
     Active Substance: VALGANCICLOVIR HYDROCHLORIDE
     Indication: PRODUCT USED FOR UNKNOWN INDICATION
     Route: 065
  4. TASIGNA [Suspect]
     Active Substance: NILOTINIB
     Indication: CHRONIC MYELOID LEUKAEMIA
     Dosage: 400 MG, BID
     Route: 065
     Dates: start: 201307, end: 201507
  5. TASIGNA [Suspect]
     Active Substance: NILOTINIB
     Dosage: 200 MG, BID
     Route: 048
     Dates: start: 20161028, end: 20161110
  6. BACTRIM [Suspect]
     Active Substance: SULFAMETHOXAZOLE\TRIMETHOPRIM
     Indication: PRODUCT USED FOR UNKNOWN INDICATION
     Route: 065

REACTIONS (22)
  - Therapeutic response decreased [Unknown]
  - Venoocclusive disease [Fatal]
  - Pericarditis [Unknown]
  - Cytogenetic analysis abnormal [Unknown]
  - Vomiting [Unknown]
  - Cystitis haemorrhagic [Unknown]
  - Pneumonia [Unknown]
  - Syncope [Unknown]
  - Transplantation complication [Fatal]
  - Dyspnoea [Unknown]
  - Renal impairment [Unknown]
  - Liver function test abnormal [Unknown]
  - Transplant failure [Unknown]
  - Mucosal inflammation [Unknown]
  - Hypertension [Unknown]
  - Drug intolerance [Unknown]
  - Pancytopenia [Unknown]
  - Chronic myeloid leukaemia [Unknown]
  - Rash [Unknown]
  - Cytomegalovirus infection [Unknown]
  - Upper gastrointestinal haemorrhage [Unknown]
  - Infection [Unknown]

NARRATIVE: CASE EVENT DATE: 2015
